FAERS Safety Report 13069251 (Version 1)
Quarter: 2016Q4

REPORT INFORMATION
  Report Type: Spontaneous
  Country: NO (occurrence: NO)
  Receive Date: 20161228
  Receipt Date: 20161228
  Transmission Date: 20170207
  Serious: Yes (Other)
  Sender: FDA-Public Use
  Company Number: PHHY2016NO175047

PATIENT
  Sex: Female

DRUGS (13)
  1. ORFIRIL [Suspect]
     Active Substance: VALPROIC ACID
     Dosage: 600 + 900 MG
     Route: 065
  2. FOLIC ACID. [Concomitant]
     Active Substance: FOLIC ACID
     Indication: PRODUCT USED FOR UNKNOWN INDICATION
     Dosage: DOSES BETWEEN 0.4 MG AND 4 MG BEFORE AND DURING PREGNANCIES
     Route: 065
  3. ORFIRIL [Suspect]
     Active Substance: VALPROIC ACID
     Dosage: 300 PLUS 600 MG
     Route: 065
  4. KEPPRA [Suspect]
     Active Substance: LEVETIRACETAM
     Indication: EPILEPSY
     Dosage: 500 PLUS 1000 MG
     Route: 065
     Dates: start: 20031023
  5. KEPPRA [Suspect]
     Active Substance: LEVETIRACETAM
     Dosage: 500+1000MG
     Route: 065
     Dates: start: 20031023
  6. LAMICTAL [Suspect]
     Active Substance: LAMOTRIGINE
     Indication: EPILEPSY
     Dosage: UNK
     Route: 065
     Dates: start: 1995
  7. FENEMAL [Suspect]
     Active Substance: PHENOBARBITAL
     Indication: EPILEPSY
     Dosage: UNK
     Route: 065
  8. ORFIRIL [Suspect]
     Active Substance: VALPROIC ACID
     Indication: EPILEPSY
     Dosage: 600MG X 2
     Route: 065
     Dates: start: 19871014
  9. ORFIRIL [Suspect]
     Active Substance: VALPROIC ACID
     Dosage: 600MG X 2
     Route: 065
     Dates: start: 200404
  10. TRILEPTAL [Suspect]
     Active Substance: OXCARBAZEPINE
     Dosage: 600MG X 2
     Route: 065
     Dates: start: 200312
  11. KEPPRA [Suspect]
     Active Substance: LEVETIRACETAM
     Dosage: UNK
     Route: 065
     Dates: start: 20031023
  12. ORFIRIL [Suspect]
     Active Substance: VALPROIC ACID
     Dosage: 600MG X 2
     Route: 065
  13. TRILEPTAL [Suspect]
     Active Substance: OXCARBAZEPINE
     Indication: EPILEPSY
     Dosage: 600MG X 2
     Route: 065
     Dates: start: 19951124, end: 2003

REACTIONS (5)
  - Seizure [Unknown]
  - Maternal exposure timing unspecified [Recovered/Resolved]
  - Drug ineffective [Recovered/Resolved]
  - Rash [Unknown]
  - Epilepsy [Unknown]

NARRATIVE: CASE EVENT DATE: 1995
